FAERS Safety Report 4417294-9 (Version None)
Quarter: 2004Q3

REPORT INFORMATION
  Report Type: 
  Country: None (occurrence: None)
  Receive Date: 20040802
  Receipt Date: 20040720
  Transmission Date: 20050211
  Serious: Yes (Other)
  Sender: FDA-Public Use
  Company Number: 2004049272

PATIENT
  Age: 65 Year
  Sex: Male
  Weight: 81.6475 kg

DRUGS (2)
  1. ZYRTEC-D 12 HOUR [Suspect]
     Indication: SINUSITIS
     Dosage: 2 IN 1 D, ORAL
     Route: 048
     Dates: start: 20040621, end: 20040622
  2. CEFDINIR (CEFDINIR) [Concomitant]

REACTIONS (2)
  - CONDITION AGGRAVATED [None]
  - HAEMOPTYSIS [None]
